FAERS Safety Report 4646898-3 (Version None)
Quarter: 2005Q2

REPORT INFORMATION
  Report Type: 
  Country: None (occurrence: None)
  Receive Date: 20050427
  Receipt Date: 20050110
  Transmission Date: 20051028
  Serious: Yes (Life-Threatening, Hospitalization, Disabling)
  Sender: FDA-Public Use
  Company Number: US-MERCK-0501USA00905

PATIENT
  Age: 60 Year
  Sex: Female

DRUGS (29)
  1. VIOXX [Suspect]
     Indication: PAIN
     Route: 048
     Dates: start: 19990701, end: 20030101
  2. VIOXX [Suspect]
     Indication: ARTHRALGIA
     Route: 048
     Dates: start: 19990701, end: 20030101
  3. CELEBREX [Concomitant]
     Route: 065
  4. ATIVAN [Concomitant]
     Route: 065
  5. CARDIZEM [Concomitant]
     Route: 065
  6. PREMARIN [Concomitant]
     Route: 065
  7. PROPULSID [Concomitant]
     Route: 065
  8. PHENOBARBITAL [Concomitant]
     Route: 065
  9. PREVACID [Concomitant]
     Route: 065
  10. FIBRO MALIC [Concomitant]
     Route: 065
  11. MINIPRESS [Concomitant]
     Route: 065
  12. DIMETHYL SULFONE [Concomitant]
     Route: 065
  13. PROZAC [Concomitant]
     Route: 065
  14. SALAGEN [Concomitant]
     Route: 065
  15. ASCORBIC ACID [Concomitant]
     Route: 065
  16. VITAMIN E [Concomitant]
     Route: 065
  17. DARVOCET-N 100 [Concomitant]
     Route: 065
  18. RESTORIL [Concomitant]
     Route: 065
  19. ESTRATEST [Concomitant]
     Route: 065
  20. EVOXAC [Concomitant]
     Route: 065
  21. MONOPRIL [Concomitant]
     Route: 065
  22. NITRO-BID [Concomitant]
     Route: 065
  23. AMBIEN [Concomitant]
     Indication: ANXIETY
     Route: 065
  24. REGLAN [Concomitant]
     Route: 065
  25. DIFLUCAN [Concomitant]
     Route: 048
     Dates: start: 20001001
  26. DIFLUCAN [Concomitant]
     Route: 065
     Dates: start: 20010101
  27. VITAMINS (UNSPECIFIED) [Concomitant]
     Route: 065
  28. ESGIC-PLUS TABLETS [Concomitant]
     Route: 065
     Dates: start: 20010101
  29. MYLANTA + MYLANTA DS [Concomitant]
     Route: 065
     Dates: start: 20010101

REACTIONS (39)
  - ANGINA UNSTABLE [None]
  - ARTHRALGIA [None]
  - BLOOD PRESSURE INCREASED [None]
  - CANDIDIASIS [None]
  - CORONARY ARTERY DISEASE [None]
  - CORONARY ARTERY OCCLUSION [None]
  - CORONARY ARTERY STENOSIS [None]
  - COUGH [None]
  - DIFFICULTY IN WALKING [None]
  - DRY SKIN [None]
  - ELECTROCARDIOGRAM T WAVE ABNORMAL [None]
  - FATIGUE [None]
  - FIBROMYALGIA [None]
  - FLUID RETENTION [None]
  - FUNGAL INFECTION [None]
  - GASTROOESOPHAGEAL REFLUX DISEASE [None]
  - HEADACHE [None]
  - HIATUS HERNIA [None]
  - INSOMNIA [None]
  - JOINT CREPITATION [None]
  - JOINT SPRAIN [None]
  - JOINT STIFFNESS [None]
  - LIGAMENT SPRAIN [None]
  - MUSCLE SPASMS [None]
  - MUSCULOSKELETAL DISCOMFORT [None]
  - MYOCARDIAL INFARCTION [None]
  - NIGHT SWEATS [None]
  - PEPTIC ULCER [None]
  - PHARYNGEAL CANDIDIASIS [None]
  - PLEURAL EFFUSION [None]
  - POST PROCEDURAL COMPLICATION [None]
  - PRURITUS [None]
  - RASH [None]
  - SLEEP DISORDER [None]
  - TREMOR [None]
  - ULCER [None]
  - VENTRICULAR TACHYCARDIA [None]
  - VOMITING [None]
  - WEIGHT INCREASED [None]
